FAERS Safety Report 24446880 (Version 2)
Quarter: 2024Q4

REPORT INFORMATION
  Report Type: Spontaneous
  Country: DE (occurrence: DE)
  Receive Date: 20241016
  Receipt Date: 20241021
  Transmission Date: 20250115
  Serious: Yes (Other)
  Sender: GILEAD
  Company Number: DE-DCGMA-24204022

PATIENT
  Age: 60 Year
  Sex: Male
  Weight: 101 kg

DRUGS (3)
  1. YESCARTA [Suspect]
     Active Substance: AXICABTAGENE CILOLEUCEL
     Indication: Diffuse large B-cell lymphoma
     Dosage: 10^6/KG
     Route: 042
     Dates: start: 20230504, end: 20230504
  2. FLUDARABINE PHOSPHATE [Concomitant]
     Active Substance: FLUDARABINE PHOSPHATE
     Indication: Diffuse large B-cell lymphoma
     Dosage: 30 MG/M2
     Route: 042
     Dates: start: 20230429, end: 20230501
  3. CYCLOPHOSPHAMIDE [Concomitant]
     Active Substance: CYCLOPHOSPHAMIDE
     Indication: Diffuse large B-cell lymphoma
     Dosage: 500 MG/M2
     Route: 042
     Dates: start: 20230429, end: 20230501

REACTIONS (3)
  - Tumour pseudoprogression [Recovered/Resolved]
  - Condition aggravated [Recovered/Resolved]
  - Oedema peripheral [Recovered/Resolved]

NARRATIVE: CASE EVENT DATE: 20230511
